FAERS Safety Report 10358380 (Version 2)
Quarter: 2014Q3

REPORT INFORMATION
  Report Type: Spontaneous
  Country: US (occurrence: US)
  Receive Date: 20140801
  Receipt Date: 20140801
  Transmission Date: 20150326
  Serious: Yes (Other)
  Sender: FDA-Public Use
  Company Number: US-TAKEDA-TPA2013A06255

PATIENT

DRUGS (9)
  1. ACTOS [Suspect]
     Active Substance: PIOGLITAZONE HYDROCHLORIDE
     Indication: TYPE 2 DIABETES MELLITUS
     Dosage: 45 MG, UNK
     Route: 048
     Dates: start: 1983, end: 201108
  2. LANTUS [Concomitant]
     Active Substance: INSULIN GLARGINE
     Dosage: DURATION: BEFORE 1991
  3. METFORMIN [Concomitant]
     Active Substance: METFORMIN HYDROCHLORIDE
     Dosage: DURATION SOMETIME AFTER 2011
  4. GLUCOPHAGE [Concomitant]
     Active Substance: METFORMIN HYDROCHLORIDE
     Dosage: DURATION SOMETIMES AFTER 2010
  5. GLUCOTROL [Concomitant]
     Active Substance: GLIPIZIDE
     Dosage: DURATION: AROUND 2002
  6. AVANDIA [Concomitant]
     Active Substance: ROSIGLITAZONE MALEATE
     Dosage: UNK
  7. GLYSET                             /01364001/ [Concomitant]
     Dosage: DURATION: BEFORE 1991
  8. LEVEMIR [Concomitant]
     Active Substance: INSULIN DETEMIR
     Dosage: UNK
     Dates: start: 1991
  9. JANUVIA [Concomitant]
     Active Substance: SITAGLIPTIN PHOSPHATE
     Dosage: DURATION: AFTER 2011

REACTIONS (2)
  - Renal cancer [Unknown]
  - Bladder cancer [Unknown]

NARRATIVE: CASE EVENT DATE: 2009
